FAERS Safety Report 24302713 (Version 1)
Quarter: 2024Q3

REPORT INFORMATION
  Report Type: Spontaneous
  Country: IN (occurrence: IN)
  Receive Date: 20240910
  Receipt Date: 20240910
  Transmission Date: 20241016
  Serious: Yes (Other)
  Sender: RANBAXY
  Company Number: IN-SUN PHARMACEUTICAL INDUSTRIES LTD-2024R1-467045

PATIENT
  Age: 72 Year
  Sex: Female

DRUGS (2)
  1. CEFOPERAZONE\SULBACTAM [Suspect]
     Active Substance: CEFOPERAZONE\SULBACTAM
     Indication: Antibiotic therapy
     Dosage: 1.5 GRAM, Q3H
     Route: 042
  2. CLINDAMYCIN [Suspect]
     Active Substance: CLINDAMYCIN
     Indication: Antibiotic therapy
     Dosage: 600 MILLIGRAM, Q3H
     Route: 065

REACTIONS (2)
  - Condition aggravated [Unknown]
  - Treatment failure [Unknown]
